FAERS Safety Report 10257822 (Version 1)
Quarter: 2014Q2

REPORT INFORMATION
  Report Type: Spontaneous
  Country: US (occurrence: None)
  Receive Date: 20140623
  Receipt Date: 20140623
  Transmission Date: 20141212
  Serious: Yes (Hospitalization)
  Sender: FDA-Public Use
  Company Number: None

PATIENT
  Age: 49 Year
  Sex: Female
  Weight: 51.9 kg

DRUGS (4)
  1. CARBOPLATIN [Suspect]
  2. CISPLATIN [Suspect]
  3. PACLITAXEL (TAXOL) [Suspect]
  4. HYCAMTIN [Concomitant]

REACTIONS (7)
  - Pancytopenia [None]
  - Cervix carcinoma recurrent [None]
  - Ileus [None]
  - Abdominal pain [None]
  - Nausea [None]
  - Vomiting [None]
  - Septic shock [None]
